FAERS Safety Report 12086914 (Version 1)
Quarter: 2016Q1

REPORT INFORMATION
  Report Type: Spontaneous
  Country: US (occurrence: US)
  Receive Date: 20160217
  Receipt Date: 20160217
  Transmission Date: 20160526
  Serious: No
  Sender: FDA-Public Use
  Company Number: US-ALLERGAN-1508867US

PATIENT
  Age: 63 Year
  Sex: Female

DRUGS (2)
  1. REFRESH TEARS [Suspect]
     Active Substance: CARBOXYMETHYLCELLULOSE SODIUM
     Indication: DRY EYE
     Dosage: 1 DROP, EACH EYE, 4 TIMES A DAY
     Route: 047
  2. RESTASIS [Suspect]
     Active Substance: CYCLOSPORINE
     Indication: DRY EYE
     Dosage: 1 DROP INTO EACH EYE TWICE DAILY
     Route: 047
     Dates: start: 201311

REACTIONS (1)
  - Skin discolouration [Not Recovered/Not Resolved]
